FAERS Safety Report 4433547-2 (Version None)
Quarter: 2004Q3

REPORT INFORMATION
  Report Type: 
  Country: None (occurrence: None)
  Receive Date: 20040825
  Receipt Date: 20040823
  Transmission Date: 20050211
  Serious: Yes (Death)
  Sender: FDA-Public Use
  Company Number: 04-07-1034

PATIENT
  Age: 83 Year
  Sex: Female
  Weight: 50 kg

DRUGS (3)
  1. CLOZAPINE [Suspect]
     Indication: HALLUCINATION
     Dosage: 25MG BID ORAL
     Route: 048
     Dates: start: 20040216, end: 20040601
  2. CLOZAPINE [Suspect]
     Indication: PARKINSON'S DISEASE
     Dosage: 25MG BID ORAL
     Route: 048
     Dates: start: 20040216, end: 20040601
  3. MIRAPEX [Concomitant]

REACTIONS (2)
  - ADENOCARCINOMA [None]
  - METASTASIS [None]
